FAERS Safety Report 26075428 (Version 1)
Quarter: 2025Q4

REPORT INFORMATION
  Report Type: Other
  Country: US (occurrence: US)
  Receive Date: 20251121
  Receipt Date: 20251121
  Transmission Date: 20260118
  Serious: No
  Sender: VERASTEM
  Company Number: US-VERASTEM-251007US-AFCPK-00674

PATIENT

DRUGS (1)
  1. AVMAPKI FAKZYNJA CO-PACK [Suspect]
     Active Substance: AVUTOMETINIB POTASSIUM\DEFACTINIB HYDROCHLORIDE
     Indication: Ovarian cancer
     Dosage: AVMAPKI 2.4MG TWICE WEEKLY FOR THE FIRST 3 WEEKS OF EACH 4 WEEK CYCLE (TAKES SUNDAY / WEDNESDAY), FA
     Route: 048
     Dates: start: 20250831

REACTIONS (4)
  - Osteoporosis [Unknown]
  - Vitamin D decreased [Unknown]
  - Peripheral swelling [Unknown]
  - Dry skin [Unknown]
